FAERS Safety Report 18482659 (Version 1)
Quarter: 2020Q4

REPORT INFORMATION
  Report Type: Spontaneous
  Country: DE (occurrence: DE)
  Receive Date: 20201109
  Receipt Date: 20201109
  Transmission Date: 20210114
  Serious: Yes (Hospitalization)
  Sender: FDA-Public Use
  Company Number: NVSC2020DE292774

PATIENT
  Age: 86 Year
  Sex: Female

DRUGS (6)
  1. TOLTERODINE [Concomitant]
     Active Substance: TOLTERODINE
     Indication: PRODUCT USED FOR UNKNOWN INDICATION
     Dosage: 2 MG (1-0-0-1)
     Route: 065
  2. CEFPODOXIME PROXETIL. [Suspect]
     Active Substance: CEFPODOXIME PROXETIL
     Indication: PRODUCT USED FOR UNKNOWN INDICATION
     Dosage: 200 MG (SEIT 13082020)
     Route: 065
  3. ACETYLSALICYLSAEURE [Concomitant]
     Active Substance: ASPIRIN
     Indication: PRODUCT USED FOR UNKNOWN INDICATION
     Dosage: 10 MG (0-1-0-0)
     Route: 065
  4. DULOXETINE. [Concomitant]
     Active Substance: DULOXETINE
     Indication: PRODUCT USED FOR UNKNOWN INDICATION
     Dosage: 30 MG (1-0-0-0)
     Route: 065
  5. RAMIPRIL. [Concomitant]
     Active Substance: RAMIPRIL
     Indication: PRODUCT USED FOR UNKNOWN INDICATION
     Dosage: 5 MG (0.5-0-0-0)
     Route: 065
  6. ATORVASTATIN [Concomitant]
     Active Substance: ATORVASTATIN
     Indication: PRODUCT USED FOR UNKNOWN INDICATION
     Dosage: 10 MG (0-0-1-0)
     Route: 065

REACTIONS (2)
  - Vision blurred [Unknown]
  - Dizziness [Unknown]
